FAERS Safety Report 19546952 (Version 6)
Quarter: 2021Q3

REPORT INFORMATION
  Report Type: Report from Study
  Country: CN (occurrence: CN)
  Receive Date: 20210714
  Receipt Date: 20210908
  Transmission Date: 20211014
  Serious: Yes (Hospitalization)
  Sender: FDA-Public Use
  Company Number: CN-ROCHE-2862555

PATIENT
  Age: 61 Year
  Sex: Male
  Weight: 61 kg

DRUGS (37)
  1. TIRAGOLUMAB. [Suspect]
     Active Substance: TIRAGOLUMAB
     Indication: OESOPHAGEAL SQUAMOUS CELL CARCINOMA
     Dosage: START DATE OF MOST RECENT DOSE OF STUDY DRUG PRIOR TO AE/SAE: 10/JUN/2021
     Route: 042
     Dates: start: 20210610, end: 20210701
  2. GLUCOSE [Concomitant]
     Active Substance: DEXTROSE
     Dates: start: 20210701, end: 20210701
  3. DIPHENHYDRAMINE. [Concomitant]
     Active Substance: DIPHENHYDRAMINE
     Dates: start: 20210610, end: 20210610
  4. DEXAMETHASONE SODIUM PHOSPHATE. [Concomitant]
     Active Substance: DEXAMETHASONE SODIUM PHOSPHATE
     Route: 042
     Dates: start: 20210610, end: 20210610
  5. GLUCOSE [Concomitant]
     Active Substance: DEXTROSE
     Dates: start: 20210609, end: 20210613
  6. POTASSIUM CHLORIDE. [Concomitant]
     Active Substance: POTASSIUM CHLORIDE
     Dates: start: 20210719, end: 20210722
  7. FUROSEMIDE. [Concomitant]
     Active Substance: FUROSEMIDE
     Dates: start: 20210609, end: 20210611
  8. SODIUM BICARBONATE. [Concomitant]
     Active Substance: SODIUM BICARBONATE
     Dates: start: 20210610, end: 20210610
  9. ADEMETIONINE BUTANEDISULFONATE [Concomitant]
     Active Substance: ADEMETIONINE BUTANEDISULFONATE
     Route: 042
     Dates: start: 20210701, end: 20210723
  10. DIPHENHYDRAMINE HYDROCHLORIDE. [Concomitant]
     Active Substance: DIPHENHYDRAMINE HYDROCHLORIDE
     Dates: start: 20210720, end: 20210720
  11. ATEZOLIZUMAB. [Suspect]
     Active Substance: ATEZOLIZUMAB
     Indication: OESOPHAGEAL SQUAMOUS CELL CARCINOMA
     Dosage: START DATE OF MOST RECENT DOSE OF STUDY DRUG PRIOR TO AE/SAE: 10/JUN/2021
     Route: 042
     Dates: start: 20210610, end: 20210701
  12. CISPLATIN. [Suspect]
     Active Substance: CISPLATIN
     Indication: OESOPHAGEAL SQUAMOUS CELL CARCINOMA
     Dosage: ON 10/JUN/2021, RECEIVED LAST DOSE OF CISPLATIN
     Route: 042
     Dates: start: 20210610, end: 20210701
  13. COMPOUND SODIUM CHLORIDE [Concomitant]
     Dates: start: 20210609, end: 20210609
  14. CIMETIDINE [Concomitant]
     Active Substance: CIMETIDINE
     Dates: start: 20210720, end: 20210720
  15. COMPOUND SODIUM CHLORIDE [Concomitant]
     Dates: start: 20210611, end: 20210611
  16. OMEPRAZOLE SODIUM [Concomitant]
     Active Substance: OMEPRAZOLE SODIUM
     Dates: start: 20210720, end: 20210723
  17. GLUCOSE [Concomitant]
     Active Substance: DEXTROSE
     Dates: start: 20210719, end: 20210719
  18. PROMETHAZINE HYDROCHLORIDE. [Concomitant]
     Active Substance: PROMETHAZINE HYDROCHLORIDE
     Route: 030
     Dates: start: 20210610, end: 20210610
  19. TROPISETRON [Concomitant]
     Active Substance: TROPISETRON
     Dates: start: 20210610, end: 20210613
  20. COMPOUND DIGESTIVE ENZYME [Concomitant]
     Active Substance: DIETARY SUPPLEMENT
     Dates: start: 20210711
  21. TRAMADOL HYDROCHLORIDE. [Concomitant]
     Active Substance: TRAMADOL HYDROCHLORIDE
     Indication: ANALGESIC THERAPY
     Dates: start: 20210703, end: 20210703
  22. BACLOFEN. [Concomitant]
     Active Substance: BACLOFEN
     Dates: start: 20210723, end: 20210723
  23. LORATADINE. [Concomitant]
     Active Substance: LORATADINE
     Dates: start: 20210617, end: 20210627
  24. POTASSIUM CHLORIDE. [Concomitant]
     Active Substance: POTASSIUM CHLORIDE
     Dosage: POTASSIUM CHLORIDE INJECTION
     Dates: start: 20210609, end: 20210612
  25. TROPISETRON HYDROCHLORIDE [Concomitant]
     Active Substance: TROPISETRON HYDROCHLORIDE
     Dates: start: 20210720, end: 20210723
  26. PACLITAXEL. [Suspect]
     Active Substance: PACLITAXEL
     Indication: OESOPHAGEAL SQUAMOUS CELL CARCINOMA
     Dosage: ON 10/JUN/2021 RECEIVED LAST DOSE OF PACLITAXEL
     Route: 042
     Dates: start: 20210610, end: 20210701
  27. DEXAMETHASONE SODIUM PHOSPHATE. [Concomitant]
     Active Substance: DEXAMETHASONE SODIUM PHOSPHATE
     Route: 042
     Dates: start: 20210720, end: 20210720
  28. SODIUM BICARBONATE. [Concomitant]
     Active Substance: SODIUM BICARBONATE
     Dates: start: 20210720, end: 20210720
  29. RACEANISODAMINE HYDROCHLORIDE [Concomitant]
     Indication: ANALGESIC THERAPY
     Dates: start: 20210703, end: 20210703
  30. DROTAVERINE HYDROCHLORIDE [Concomitant]
     Active Substance: DROTAVERINE HYDROCHLORIDE
     Indication: ANALGESIC THERAPY
     Dates: start: 20210703, end: 20210703
  31. GLUCOSE [Concomitant]
     Active Substance: DEXTROSE
     Dates: start: 20210719, end: 20210722
  32. FUROSEMIDE. [Concomitant]
     Active Substance: FUROSEMIDE
     Dates: start: 20210719, end: 20210722
  33. DIPHENHYDRAMINE. [Concomitant]
     Active Substance: DIPHENHYDRAMINE
     Route: 030
     Dates: start: 20210720, end: 20210720
  34. ALBUMIN PREPARED FROM HUMAN PLASMA [Concomitant]
     Dates: start: 20210723, end: 20210723
  35. POTASSIUM CHLORIDE. [Concomitant]
     Active Substance: POTASSIUM CHLORIDE
     Dates: start: 20210701, end: 20210701
  36. CIMETIDINE [Concomitant]
     Active Substance: CIMETIDINE
     Dates: start: 20210610, end: 20210610
  37. FUSIDIC ACID [Concomitant]
     Active Substance: FUSIDIC ACID
     Dates: start: 20210707, end: 20210723

REACTIONS (2)
  - Drug-induced liver injury [Recovering/Resolving]
  - Hepatic function abnormal [Recovering/Resolving]

NARRATIVE: CASE EVENT DATE: 20210613
